FAERS Safety Report 9497615 (Version 1)
Quarter: 2013Q3

REPORT INFORMATION
  Report Type: Spontaneous
  Country: US (occurrence: None)
  Receive Date: 20130903
  Receipt Date: 20130903
  Transmission Date: 20140515
  Serious: Yes (Hospitalization, Disabling)
  Sender: FDA-Public Use
  Company Number: None

PATIENT
  Age: 57 Year
  Sex: Male
  Weight: 72.58 kg

DRUGS (1)
  1. DIVALPROEX SODIUM [Suspect]
     Indication: BIPOLAR DISORDER
     Route: 048
     Dates: start: 20130721, end: 20130809

REACTIONS (4)
  - Drug ineffective [None]
  - Hypomania [None]
  - Antipsychotic drug level below therapeutic [None]
  - Product substitution issue [None]
